FAERS Safety Report 8080219-1 (Version None)
Quarter: 2012Q1

REPORT INFORMATION
  Report Type: 
  Country: None (occurrence: None)
  Receive Date: 20120127
  Receipt Date: 20110224
  Transmission Date: 20120608
  Serious: Yes (Other)
  Sender: FDA-Public Use
  Company Number: US-ABBOTT-11P-163-0707699-00

PATIENT
  Age: 28 Year
  Sex: Female

DRUGS (10)
  1. XANAX [Concomitant]
     Indication: ANXIETY
  2. METHOTREXATE [Concomitant]
     Indication: RHEUMATOID ARTHRITIS
  3. WARFARIN SODIUM [Concomitant]
  4. ONDANSETRON HCL [Concomitant]
     Indication: NAUSEA
     Dosage: AS NEEDED EVERY 4 HOURS
  5. WARFARIN SODIUM [Concomitant]
     Indication: PRODUCT USED FOR UNKNOWN INDICATION
  6. NORCO [Concomitant]
     Indication: PAIN
     Dosage: AS NEEDED EVERY 4 HOURS
  7. HUMIRA [Suspect]
     Indication: RHEUMATOID ARTHRITIS
     Dates: start: 20090401
  8. WARFARIN SODIUM [Concomitant]
  9. OXYCODONE HCL [Concomitant]
     Indication: PAIN
     Dosage: AS NEEDED
  10. AMBIEN [Concomitant]
     Indication: INSOMNIA
     Dosage: AT NIGHT

REACTIONS (3)
  - OOPHORECTOMY [None]
  - NECROTISING FASCIITIS [None]
  - INJECTION SITE PAIN [None]
